FAERS Safety Report 8337729-9 (Version None)
Quarter: 2012Q2

REPORT INFORMATION
  Report Type: 
  Country: None (occurrence: None)
  Receive Date: 20120504
  Receipt Date: 20120427
  Transmission Date: 20120825
  Serious: Yes (Other)
  Sender: FDA-Public Use
  Company Number: JP-JNJFOC-20120409749

PATIENT
  Age: 7 Decade
  Sex: Female

DRUGS (4)
  1. LOXONIN [Concomitant]
     Route: 065
  2. INDOMETHACIN [Suspect]
     Indication: PAIN
     Route: 065
  3. ACETAMINOPHEN [Concomitant]
     Route: 065
  4. TRAMADOL HYDROCHLORIDE AND ACETAMINOPHEN [Suspect]
     Indication: PAIN
     Route: 048

REACTIONS (1)
  - RENAL IMPAIRMENT [None]
